FAERS Safety Report 19122873 (Version 1)
Quarter: 2021Q2

REPORT INFORMATION
  Report Type: Report from Study
  Country: PK (occurrence: PK)
  Receive Date: 20210412
  Receipt Date: 20210412
  Transmission Date: 20210717
  Serious: Yes (Death)
  Sender: FDA-Public Use
  Company Number: NVSC2021PK081869

PATIENT
  Sex: Male

DRUGS (2)
  1. ASUNRA [Suspect]
     Active Substance: DEFERASIROX
     Dosage: 100 MG, BID (2*OD)
     Route: 048
     Dates: start: 20180821, end: 2020
  2. ASUNRA [Suspect]
     Active Substance: DEFERASIROX
     Indication: THALASSAEMIA
     Dosage: 400 MG, QD (1*OD)
     Route: 048
     Dates: start: 20180821, end: 2020

REACTIONS (1)
  - Death [Fatal]

NARRATIVE: CASE EVENT DATE: 2020
